FAERS Safety Report 5104972-1 (Version None)
Quarter: 2006Q3

REPORT INFORMATION
  Report Type: 
  Country: None (occurrence: None)
  Receive Date: 20060911
  Receipt Date: 20060825
  Transmission Date: 20061208
  Serious: Yes (Other)
  Sender: FDA-Public Use
  Company Number: US-SHR-03-004499

PATIENT
  Age: 31 Year
  Sex: Female
  Weight: 70.2 kg

DRUGS (1)
  1. BETASERON [Suspect]
     Indication: MULTIPLE SCLEROSIS
     Dosage: 8 MIU, EVERY 2D, SUBCUTANEOUS
     Route: 058
     Dates: start: 20030103, end: 20030312

REACTIONS (4)
  - EYE PAIN [None]
  - LIVER FUNCTION TEST ABNORMAL [None]
  - RETINAL ISCHAEMIA [None]
  - RETINOPATHY HAEMORRHAGIC [None]
